FAERS Safety Report 8052816-0 (Version None)
Quarter: 2012Q1

REPORT INFORMATION
  Report Type: 
  Country: None (occurrence: None)
  Receive Date: 20120118
  Receipt Date: 20120111
  Transmission Date: 20120608
  Serious: Yes (Hospitalization, Other)
  Sender: FDA-Public Use
  Company Number: PHHY2012AR003260

PATIENT
  Sex: Male

DRUGS (2)
  1. DIOVAN [Suspect]
     Indication: BLOOD PRESSURE ABNORMAL
     Dosage: 80 MG, DAILY
  2. OMEPRAZOLE [Concomitant]

REACTIONS (4)
  - GASTRIC VARICES [None]
  - BLOOD URINE PRESENT [None]
  - HAEMATEMESIS [None]
  - HAEMATOCHEZIA [None]
